FAERS Safety Report 6022398-3 (Version None)
Quarter: 2008Q4

REPORT INFORMATION
  Report Type: 
  Country: None (occurrence: None)
  Receive Date: 20081223
  Receipt Date: 20081223
  Transmission Date: 20090506
  Serious: Yes (Other)
  Sender: FDA-Public Use
  Company Number: None

PATIENT
  Age: 65 Year
  Sex: Female

DRUGS (1)
  1. COSOPT [Suspect]
     Indication: GLAUCOMA
     Dosage: INSTILL 1 DROP IN BOTH EYE TWO TIMES A DAY

REACTIONS (2)
  - BURNING SENSATION [None]
  - PRODUCT QUALITY ISSUE [None]
